FAERS Safety Report 13593499 (Version 1)
Quarter: 2017Q2

REPORT INFORMATION
  Report Type: Spontaneous
  Country: US (occurrence: US)
  Receive Date: 20170530
  Receipt Date: 20170530
  Transmission Date: 20170830
  Serious: No
  Sender: FDA-Public Use
  Company Number: US-TEVA-727904ACC

PATIENT
  Age: 69 Year
  Sex: Female
  Weight: 84.9 kg

DRUGS (2)
  1. CLOPIDOGREL TABLETS, USP [Suspect]
     Active Substance: CLOPIDOGREL BISULFATE
     Dates: start: 201610
  2. CLOPIDOGREL TABLETS, USP [Suspect]
     Active Substance: CLOPIDOGREL BISULFATE
     Indication: CORONARY ARTERY DISEASE
     Dates: end: 201608

REACTIONS (3)
  - Vision blurred [Unknown]
  - Somnolence [Unknown]
  - Nausea [Unknown]

NARRATIVE: CASE EVENT DATE: 2016
